FAERS Safety Report 9562030 (Version 1)
Quarter: 2013Q3

REPORT INFORMATION
  Report Type: Spontaneous
  Country: US (occurrence: US)
  Receive Date: 20130927
  Receipt Date: 20130927
  Transmission Date: 20140515
  Serious: Yes (Other)
  Sender: FDA-Public Use
  Company Number: US-PFIZER INC-2013276212

PATIENT
  Age: 73 Year
  Sex: Female
  Weight: 50.34 kg

DRUGS (7)
  1. LYRICA [Suspect]
     Indication: PAIN IN EXTREMITY
     Dosage: 100 MG, 3X/DAY
     Route: 048
  2. LYRICA [Suspect]
     Indication: DIABETIC NEUROPATHY
  3. LYRICA [Suspect]
     Indication: SCIATIC NERVE INJURY
  4. GLIBURIDE/METFORMIN HYDROCHLORIDE [Concomitant]
     Indication: DIABETES MELLITUS
     Dosage: UNK
  5. LEVOTHYROXINE [Concomitant]
     Indication: HYPOTHYROIDISM
     Dosage: UNK
  6. NADOLOL [Concomitant]
     Indication: PORTAL VEIN PRESSURE INCREASED
     Dosage: 40 MG, UNK
  7. SPIRONOLACTONE [Concomitant]
     Indication: DIURETIC THERAPY
     Dosage: UNK

REACTIONS (3)
  - Hypothyroidism [Unknown]
  - Haemoglobin decreased [Unknown]
  - Platelet count decreased [Unknown]
